FAERS Safety Report 10283275 (Version 2)
Quarter: 2014Q3

REPORT INFORMATION
  Report Type: Spontaneous
  Country: DE (occurrence: DE)
  Receive Date: 20140708
  Receipt Date: 20140717
  Transmission Date: 20150326
  Serious: Yes (Hospitalization, Other)
  Sender: FDA-Public Use
  Company Number: DE-JNJFOC-20140702699

PATIENT
  Age: 82 Year
  Sex: Male
  Weight: 82 kg

DRUGS (4)
  1. TOREM [Concomitant]
     Active Substance: TORSEMIDE
     Route: 065
     Dates: start: 20140513
  2. XARELTO [Suspect]
     Active Substance: RIVAROXABAN
     Indication: ATRIAL FIBRILLATION
     Route: 048
     Dates: start: 20140513
  3. XARELTO [Suspect]
     Active Substance: RIVAROXABAN
     Indication: CEREBROVASCULAR ACCIDENT PROPHYLAXIS
     Route: 048
     Dates: start: 20140513
  4. BISOPROLOL [Concomitant]
     Active Substance: BISOPROLOL
     Route: 065
     Dates: start: 20140513

REACTIONS (5)
  - Transient ischaemic attack [Unknown]
  - Hemianopia homonymous [Recovering/Resolving]
  - Cerebral infarction [Recovering/Resolving]
  - Memory impairment [Recovering/Resolving]
  - Speech disorder [Unknown]

NARRATIVE: CASE EVENT DATE: 20140613
